FAERS Safety Report 6589615-2 (Version None)
Quarter: 2010Q1

REPORT INFORMATION
  Report Type: 
  Country: None (occurrence: None)
  Receive Date: 20100212
  Receipt Date: 20100127
  Transmission Date: 20100710
  Serious: Yes (Life-Threatening, Hospitalization, Other)
  Sender: FDA-Public Use
  Company Number: A-US2009-26937

PATIENT
  Age: 63 Year
  Sex: Male
  Weight: 99.3 kg

DRUGS (22)
  1. TRACLEER [Suspect]
     Indication: PULMONARY HYPERTENSION
     Dosage: 62.5 MG, BID, ORAL
     Route: 048
     Dates: start: 20090514, end: 20090718
  2. PLAVIX [Concomitant]
  3. OXYGEN (OXYGEN) [Concomitant]
  4. THEOPHYLLINE [Concomitant]
  5. MUCINEX (GUAIFENSESIN) [Concomitant]
  6. SPIRIVA [Concomitant]
  7. ADVAIR (SALMETEROL XINAFOATE, FLUTICASONE PROPRIONATE) [Concomitant]
  8. ALBUTEROL (SALBUTAMOL SULFATE) [Concomitant]
  9. PREDNISONE TAB [Concomitant]
  10. PREVACID (LANSOPROAZOLE) [Concomitant]
  11. BYETTA [Concomitant]
  12. ASPIRIN [Concomitant]
  13. PRAVASTATIN [Concomitant]
  14. QUINAPRIL HCL [Concomitant]
  15. LASIX [Concomitant]
  16. POTASSIUM (POTASSIUM) [Concomitant]
  17. METFORMIN HCL [Concomitant]
  18. NIASPAN [Concomitant]
  19. NITROQUICK (GLYCERYL TRINITRATE) [Concomitant]
  20. ZETIA [Concomitant]
  21. NORVASC [Concomitant]
  22. HUMULIN R [Concomitant]

REACTIONS (5)
  - ANAEMIA [None]
  - ASTHENIA [None]
  - FATIGUE [None]
  - OFF LABEL USE [None]
  - RESPIRATORY FAILURE [None]
